FAERS Safety Report 19464894 (Version 2)
Quarter: 2021Q2

REPORT INFORMATION
  Report Type: Spontaneous
  Country: US (occurrence: US)
  Receive Date: 20210626
  Receipt Date: 20210626
  Transmission Date: 20210717
  Serious: No
  Sender: FDA-Public Use
  Company Number: US-ABBVIE-21K-163-3926277-00

PATIENT
  Age: 31 Year
  Sex: Male

DRUGS (1)
  1. SKYRIZI [Suspect]
     Active Substance: RISANKIZUMAB-RZAA
     Indication: PSORIASIS
     Route: 058
     Dates: start: 20210513

REACTIONS (5)
  - Haematochezia [Unknown]
  - Injection site rash [Unknown]
  - Rash [Unknown]
  - Diarrhoea [Unknown]
  - Henoch-Schonlein purpura [Unknown]

NARRATIVE: CASE EVENT DATE: 202105
